FAERS Safety Report 4708195-7 (Version None)
Quarter: 2005Q3

REPORT INFORMATION
  Report Type: 
  Country: None (occurrence: None)
  Receive Date: 20050705
  Receipt Date: 20050705
  Transmission Date: 20060218
  Serious: Yes (Hospitalization)
  Sender: FDA-Public Use
  Company Number: None

PATIENT
  Age: 48 Year
  Sex: Female
  Weight: 50.3493 kg

DRUGS (4)
  1. RITUXAN [Suspect]
     Indication: NON-HODGKIN'S LYMPHOMA
     Dosage: 589 MG Q 21 DAYS IV
     Route: 042
     Dates: start: 20050323
  2. CYTOXAN [Suspect]
     Indication: NON-HODGKIN'S LYMPHOMA
     Dosage: 1178 MG Q 21 DAYS IV
     Route: 042
     Dates: start: 20050323
  3. ADRIAMYCIN PFS [Suspect]
     Indication: NON-HODGKIN'S LYMPHOMA
     Dosage: 79 MG  Q 21 DAYS IV
     Route: 042
     Dates: start: 20050328
  4. VINCRISTINE [Suspect]
     Indication: NON-HODGKIN'S LYMPHOMA
     Dosage: 24 MG Q 21 DAY IV
     Route: 042
     Dates: start: 20050323

REACTIONS (8)
  - ASTHENIA [None]
  - COUGH [None]
  - DECREASED APPETITE [None]
  - DYSPNOEA [None]
  - OPPORTUNISTIC INFECTION [None]
  - PNEUMONIA [None]
  - PNEUMONITIS [None]
  - PYREXIA [None]
